FAERS Safety Report 7753850-8 (Version None)
Quarter: 2011Q3

REPORT INFORMATION
  Report Type: 
  Country: None (occurrence: None)
  Receive Date: 20110915
  Receipt Date: 20100502
  Transmission Date: 20111222
  Serious: Yes (Other)
  Sender: FDA-Public Use
  Company Number: US-JNJFOC-20110904826

PATIENT
  Sex: Male

DRUGS (2)
  1. CHILDREN'S TYLENOL SUSPENSION [Suspect]
     Indication: HEADACHE
     Route: 048
     Dates: start: 20110406
  2. CHILDREN'S TYLENOL SUSPENSION [Suspect]
     Indication: PYREXIA
     Route: 048
     Dates: start: 20110406

REACTIONS (4)
  - HEADACHE [None]
  - DIZZINESS [None]
  - PRODUCT QUALITY ISSUE [None]
  - HAEMATOCHEZIA [None]
